FAERS Safety Report 9759079 (Version 1)
Quarter: 2013Q4

REPORT INFORMATION
  Report Type: Spontaneous
  Country: US (occurrence: None)
  Receive Date: 20131216
  Receipt Date: 20131216
  Transmission Date: 20140711
  Serious: Yes (Other)
  Sender: FDA-Public Use
  Company Number: 163-21880-12103855 (0)

PATIENT
  Age: 76 Year
  Sex: Male

DRUGS (2)
  1. REVLIMID [Suspect]
     Indication: LYMPHATIC SYSTEM NEOPLASM
     Dosage: 5 MG, DAILY FOR 2 DAYS THEN 1 DAY OFF, PO ?5 MG, 1 IN 2 D, PO
  2. REVLIMID [Suspect]
     Indication: HAEMATOPOIETIC NEOPLASM
     Dosage: 5 MG, DAILY FOR 2 DAYS THEN 1 DAY OFF, PO ?5 MG, 1 IN 2 D, PO

REACTIONS (1)
  - Renal impairment [None]
